FAERS Safety Report 7014748-6 (Version None)
Quarter: 2010Q3

REPORT INFORMATION
  Report Type: 
  Country: None (occurrence: None)
  Receive Date: 20100927
  Receipt Date: 20100917
  Transmission Date: 20110219
  Serious: Yes (Other)
  Sender: FDA-Public Use
  Company Number: JP-ROCHE-728600

PATIENT
  Sex: Female
  Weight: 39 kg

DRUGS (18)
  1. TOCILIZUMAB [Suspect]
     Indication: RHEUMATOID ARTHRITIS
     Route: 041
     Dates: start: 20090618, end: 20090618
  2. TOCILIZUMAB [Suspect]
     Route: 041
     Dates: start: 20090716, end: 20090716
  3. TOCILIZUMAB [Suspect]
     Route: 041
     Dates: start: 20090820, end: 20090820
  4. TOCILIZUMAB [Suspect]
     Route: 041
     Dates: start: 20090917, end: 20090917
  5. TOCILIZUMAB [Suspect]
     Route: 041
     Dates: start: 20091015, end: 20091015
  6. TOCILIZUMAB [Suspect]
     Route: 041
     Dates: start: 20091119, end: 20091119
  7. TOCILIZUMAB [Suspect]
     Route: 041
     Dates: start: 20091217
  8. ISCOTIN [Concomitant]
     Route: 048
  9. METHOTREXATE [Concomitant]
     Dosage: FORM: PERORAL AGENT
     Route: 048
     Dates: end: 20090618
  10. PREDNISOLONE [Concomitant]
     Dosage: FORM: PERORAL AGENT
     Route: 048
  11. ALDACTONE [Concomitant]
     Route: 048
  12. THYRADIN S [Concomitant]
     Route: 048
  13. ALFACALCIDOL [Concomitant]
     Dosage: FORM: PERORAL AGENT
     Route: 048
  14. ALTAT [Concomitant]
     Route: 048
  15. INDOMETHACIN SODIUM [Concomitant]
     Dosage: FORM: SUPPOSITORIAE RECTALE
     Route: 061
  16. ANPLAG [Concomitant]
     Route: 048
  17. BERAPROST SODIUM [Concomitant]
     Route: 048
  18. ALENDRONATE SODIUM [Concomitant]
     Route: 048

REACTIONS (2)
  - ALOPECIA [None]
  - WHITE BLOOD CELL COUNT DECREASED [None]
